FAERS Safety Report 16941668 (Version 1)
Quarter: 2019Q4

REPORT INFORMATION
  Report Type: Spontaneous
  Country: DE (occurrence: DE)
  Receive Date: 20191021
  Receipt Date: 20191021
  Transmission Date: 20200122
  Serious: Yes (Other)
  Sender: FDA-Public Use
  Company Number: DE-GILEAD-2018-0381078

PATIENT
  Sex: Female

DRUGS (1)
  1. VOSEVI [Suspect]
     Active Substance: SOFOSBUVIR\VELPATASVIR\VOXILAPREVIR
     Indication: HEPATITIS C
     Route: 065

REACTIONS (7)
  - Diarrhoea [Unknown]
  - Treatment noncompliance [Unknown]
  - Nausea [Unknown]
  - Vomiting [Unknown]
  - Hepatitis C virus test positive [Unknown]
  - Drug ineffective [Unknown]
  - Hepatitis C [Unknown]
